FAERS Safety Report 4533693-9 (Version None)
Quarter: 2004Q4

REPORT INFORMATION
  Report Type: 
  Country: None (occurrence: None)
  Receive Date: 20041221
  Receipt Date: 20041208
  Transmission Date: 20050328
  Serious: Yes (Other)
  Sender: FDA-Public Use
  Company Number: JPKYO-S-20040041

PATIENT
  Age: 64 Year
  Sex: Male

DRUGS (4)
  1. NAVELBINE [Suspect]
     Indication: NON-SMALL CELL LUNG CANCER STAGE IV
     Dosage: 20MGM2 SEE DOSAGE TEXT
     Route: 042
     Dates: start: 20010724, end: 20011003
  2. CARBOPLATIN [Concomitant]
     Indication: NON-SMALL CELL LUNG CANCER STAGE IV
     Dates: start: 20010724, end: 20010926
  3. NEU-UP [Concomitant]
     Dates: start: 20011006, end: 20011020
  4. GRAN [Concomitant]
     Dates: start: 20010730, end: 20010919

REACTIONS (6)
  - ERYTHROPENIA [None]
  - HAEMATOCRIT DECREASED [None]
  - HAEMOGLOBIN DECREASED [None]
  - LEUKOPENIA [None]
  - NEUTROPENIA [None]
  - THROMBOCYTOPENIA [None]
